FAERS Safety Report 11566686 (Version 1)
Quarter: 2015Q3

REPORT INFORMATION
  Report Type: Spontaneous
  Country: US (occurrence: US)
  Receive Date: 20150916
  Receipt Date: 20150916
  Transmission Date: 20151125
  Serious: Yes (Hospitalization, Other)
  Sender: FDA-Public Use
  Company Number: US-ELI_LILLY_AND_COMPANY-US200906004724

PATIENT
  Age: 48 Year
  Sex: Male

DRUGS (20)
  1. FORTEO [Suspect]
     Active Substance: TERIPARATIDE
  2. REGLAN [Concomitant]
     Active Substance: METOCLOPRAMIDE HYDROCHLORIDE
  3. CYCLOBENZAPRINE [Concomitant]
     Active Substance: CYCLOBENZAPRINE
  4. LEVOTHYROXINE /00068002/ [Concomitant]
  5. CORTEF [Concomitant]
     Active Substance: HYDROCORTISONE
  6. PREDNISONE. [Concomitant]
     Active Substance: PREDNISONE
  7. DEMECLOCYCLINE [Concomitant]
     Active Substance: DEMECLOCYCLINE
  8. SORIATANE [Concomitant]
     Active Substance: ACITRETIN
  9. BACTRIM DS [Concomitant]
     Active Substance: SULFAMETHOXAZOLE\TRIMETHOPRIM
  10. MULTIVITAMIN [Concomitant]
     Active Substance: VITAMINS
  11. VITAMIN D [Concomitant]
     Active Substance: CHOLECALCIFEROL
  12. METOPROLOL [Concomitant]
     Active Substance: METOPROLOL
  13. LUNESTA [Concomitant]
     Active Substance: ESZOPICLONE
  14. NITREPIN [Concomitant]
  15. NORTRIPTYLINE [Concomitant]
     Active Substance: NORTRIPTYLINE
  16. KEFLEX [Concomitant]
     Active Substance: CEPHALEXIN
  17. HYDROXYZINE [Concomitant]
     Active Substance: HYDROXYZINE\HYDROXYZINE HYDROCHLORIDE
  18. TIZANIDINE. [Concomitant]
     Active Substance: TIZANIDINE
  19. PROTONIX /01263202/ [Concomitant]
  20. OSCAL /00108001/ [Concomitant]

REACTIONS (2)
  - Dyspnoea [Recovering/Resolving]
  - Pneumonia [Recovering/Resolving]

NARRATIVE: CASE EVENT DATE: 2009
